FAERS Safety Report 19854289 (Version 1)
Quarter: 2021Q3

REPORT INFORMATION
  Report Type: Spontaneous
  Country: ES (occurrence: ES)
  Receive Date: 20210920
  Receipt Date: 20210920
  Transmission Date: 20211014
  Serious: Yes (Other)
  Sender: FDA-Public Use
  Company Number: ES-CELLTRION INC.-2021ES012511

PATIENT

DRUGS (2)
  1. RITUXIMAB. [Suspect]
     Active Substance: RITUXIMAB
     Indication: SPLENIC MARGINAL ZONE LYMPHOMA
     Dosage: 375 MG/M2, CYCLIC (ON DAY 1 IN 28 DAY CYCLE, 6 CYCLES)
     Route: 065
  2. BENDAMUSTINE HYDROCHLORIDE. [Suspect]
     Active Substance: BENDAMUSTINE HYDROCHLORIDE
     Indication: SPLENIC MARGINAL ZONE LYMPHOMA
     Dosage: 100?90 MG/M2 ON DAYS DAY 1?2 IN 28 DAY CYCLE (6 CYCLES)
     Route: 042

REACTIONS (5)
  - Product use issue [Unknown]
  - Pathogen resistance [Unknown]
  - Escherichia urinary tract infection [Unknown]
  - Off label use [Unknown]
  - CD4 lymphocytes decreased [Unknown]
